FAERS Safety Report 18485814 (Version 1)
Quarter: 2020Q4

REPORT INFORMATION
  Report Type: Spontaneous
  Country: US (occurrence: US)
  Receive Date: 20201110
  Receipt Date: 20201110
  Transmission Date: 20210114
  Serious: Yes (Hospitalization)
  Sender: FDA-Public Use
  Company Number: None

PATIENT
  Age: 52 Year
  Sex: Male

DRUGS (1)
  1. VALPROIC ACID. [Suspect]
     Active Substance: VALPROIC ACID
     Indication: AGITATION
     Route: 048
     Dates: start: 20200301

REACTIONS (3)
  - Confusional state [None]
  - Therapy change [None]
  - Lethargy [None]

NARRATIVE: CASE EVENT DATE: 20200919
